FAERS Safety Report 4921250-1 (Version None)
Quarter: 2006Q1

REPORT INFORMATION
  Report Type: 
  Country: None (occurrence: None)
  Receive Date: 20060224
  Receipt Date: 20060216
  Transmission Date: 20060701
  Serious: Yes (Hospitalization)
  Sender: FDA-Public Use
  Company Number: MX-BOEHRINGER INGELHEIM PHARMACEUTICALS, INC.-2006-BP-01836MX

PATIENT
  Age: 51 Year
  Sex: Female

DRUGS (1)
  1. MOBICOX 15.0 MG TABLETS [Suspect]
     Indication: LUMBAR HERNIA
     Route: 048
     Dates: start: 20050415, end: 20050515

REACTIONS (1)
  - DRUG INEFFECTIVE [None]
